FAERS Safety Report 8523673-0 (Version None)
Quarter: 2012Q3

REPORT INFORMATION
  Report Type: 
  Country: None (occurrence: None)
  Receive Date: 20120720
  Receipt Date: 20120711
  Transmission Date: 20120928
  Serious: Yes (Other)
  Sender: FDA-Public Use
  Company Number: JP-BAYER-2011-046140

PATIENT
  Age: 77 Year
  Sex: Female

DRUGS (3)
  1. NORVASC [Concomitant]
     Indication: HYPERTENSION
     Dosage: DAILY DOSE 5 MG
     Route: 048
  2. NEXAVAR [Suspect]
     Indication: HEPATIC NEOPLASM MALIGNANT
     Dosage: 400 MG, BID
     Route: 048
     Dates: start: 20110330, end: 20120601
  3. NEXAVAR [Suspect]
     Dosage: DAILY DOSE: 400MG
     Route: 048
     Dates: start: 20120614

REACTIONS (5)
  - DIARRHOEA [None]
  - ALOPECIA [None]
  - PALMAR-PLANTAR ERYTHRODYSAESTHESIA SYNDROME [None]
  - SKIN ULCER [None]
  - CELLULITIS [None]
